FAERS Safety Report 7861119-6 (Version None)
Quarter: 2011Q4

REPORT INFORMATION
  Report Type: 
  Country: None (occurrence: None)
  Receive Date: 20111027
  Receipt Date: 20111018
  Transmission Date: 20120403
  Serious: Yes (Hospitalization)
  Sender: FDA-Public Use
  Company Number: US-ABBOTT-11P-163-0734557-00

PATIENT
  Age: 10 Year
  Sex: Male

DRUGS (11)
  1. OMEGA FISH OIL [Concomitant]
     Indication: SUPPLEMENTATION THERAPY
  2. ZANAFLEX [Concomitant]
     Indication: MUSCLE RELAXANT THERAPY
     Dosage: AT BEDTIME
  3. PREDNISONE [Concomitant]
     Indication: JUVENILE ARTHRITIS
     Dosage: DAILY
  4. TYLENOL-500 [Concomitant]
     Indication: PAIN
  5. PREVACID [Concomitant]
     Indication: UNEVALUABLE EVENT
     Dosage: DAILY
  6. INCREDIBLE LIFE (LIQUID MULTIVITAMIN) [Concomitant]
     Indication: VITAMIN SUPPLEMENTATION
     Dosage: DAILY
  7. HUMIRA [Suspect]
     Indication: JUVENILE ARTHRITIS
     Dosage: SWITCHED TO SYRINGES
     Route: 058
     Dates: start: 20110414
  8. HUMIRA [Suspect]
     Indication: JUVENILE ARTHRITIS
     Route: 058
     Dates: end: 20110701
  9. HUMIRA [Suspect]
     Route: 058
     Dates: start: 20110801
  10. CELEBREX [Concomitant]
     Indication: JUVENILE ARTHRITIS
     Dosage: DAILY
  11. ZANAFLEX [Concomitant]
     Indication: RELAXATION THERAPY

REACTIONS (15)
  - INJECTION SITE ERYTHEMA [None]
  - FEAR OF NEEDLES [None]
  - COUGH [None]
  - BRONCHITIS [None]
  - DRUG DOSE OMISSION [None]
  - SPUTUM DISCOLOURED [None]
  - REFUSAL OF TREATMENT BY PATIENT [None]
  - INJECTION SITE PAIN [None]
  - INJECTION SITE PRURITUS [None]
  - ANXIETY [None]
  - PYREXIA [None]
  - PRODUCTIVE COUGH [None]
  - SINUSITIS [None]
  - ARTHRALGIA [None]
  - ARTHRITIS [None]
